FAERS Safety Report 23739425 (Version 1)
Quarter: 2024Q2

REPORT INFORMATION
  Report Type: Spontaneous
  Country: CN (occurrence: CN)
  Receive Date: 20240413
  Receipt Date: 20240413
  Transmission Date: 20240716
  Serious: Yes (Hospitalization)
  Sender: FDA-Public Use
  Company Number: CN-STRIDES ARCOLAB LIMITED-2024SP004091

PATIENT
  Age: 2 Year
  Sex: Male

DRUGS (11)
  1. ETOPOSIDE [Suspect]
     Active Substance: ETOPOSIDE
     Indication: Desmoplastic small round cell tumour
     Dosage: UNK, CYCLICAL (REVEIVED 2 CYCLES)
     Route: 065
  2. IFOSFAMIDE [Suspect]
     Active Substance: IFOSFAMIDE
     Indication: Desmoplastic small round cell tumour
     Dosage: UNK, CYCLICAL (RECEIVED 2 CYCLES)
     Route: 065
  3. IFOSFAMIDE [Suspect]
     Active Substance: IFOSFAMIDE
     Dosage: UNK, CYCLICAL (RECEIVED 2 CYCLES)
     Route: 065
  4. VINCRISTINE [Suspect]
     Active Substance: VINCRISTINE
     Indication: Desmoplastic small round cell tumour
     Dosage: UNK, CYCLICAL (RECEIVED 2 CYCLES)
     Route: 065
  5. VINCRISTINE [Suspect]
     Active Substance: VINCRISTINE
     Dosage: UNK, CYCLICAL (RECEIVED 2 CYCLES)
     Route: 065
  6. ADRIAMYCIN [Suspect]
     Active Substance: DOXORUBICIN HYDROCHLORIDE
     Indication: Desmoplastic small round cell tumour
     Dosage: UNK, CYCLICAL (RECEIVED 2 CYCLES)
     Route: 065
  7. ADRIAMYCIN [Suspect]
     Active Substance: DOXORUBICIN HYDROCHLORIDE
     Dosage: UNK, CYCLICAL (RECEIVED 2 CYCLES)
     Route: 065
  8. CATEQUENTINIB [Suspect]
     Active Substance: CATEQUENTINIB
     Indication: Desmoplastic small round cell tumour
     Dosage: UNK, CYCLICAL (RECEIVED 2 CYCLES)
     Route: 065
  9. CISPLATIN [Suspect]
     Active Substance: CISPLATIN
     Indication: Desmoplastic small round cell tumour
     Dosage: UNK, CYCLICAL (RECEIVED 2 CYCLES)
     Route: 065
  10. CYCLOPHOSPHAMIDE [Suspect]
     Active Substance: CYCLOPHOSPHAMIDE
     Indication: Desmoplastic small round cell tumour
     Dosage: UNK, CYCLICAL (RECEIVED 2 CYCLES)
     Route: 065
  11. DACTINOMYCIN [Concomitant]
     Active Substance: DACTINOMYCIN
     Indication: Desmoplastic small round cell tumour
     Dosage: UNK, CYCLICAL (RECEIVED 2 CYCLE)
     Route: 065

REACTIONS (2)
  - Hypertriglyceridaemia [Unknown]
  - Off label use [Unknown]
